FAERS Safety Report 4436195-3 (Version None)
Quarter: 2004Q3

REPORT INFORMATION
  Report Type: 
  Country: None (occurrence: None)
  Receive Date: 20040830
  Receipt Date: 20040512
  Transmission Date: 20050211
  Serious: Yes (Other)
  Sender: FDA-Public Use
  Company Number: US-BRISTOL-MYERS SQUIBB COMPANY-12585519

PATIENT
  Age: 61 Year
  Sex: Male
  Weight: 82 kg

DRUGS (5)
  1. ERBITUX [Suspect]
     Indication: COLON CANCER METASTATIC
     Dosage: LOADING DOSE. 2ND INFUSION 02-APR-04 (450 MG), SUSPENDED DUE TO EVENT. STOPPED ON 09-APR-04
     Route: 042
     Dates: start: 20040324, end: 20040324
  2. BENADRYL [Concomitant]
     Indication: PREMEDICATION
     Dosage: 50 MG IV BEFORE 1ST AND 2ND INFUSIONS
     Route: 042
     Dates: start: 20040324, end: 20040324
  3. OXYCONTIN [Concomitant]
     Dosage: 10 MG, 2 TABLETS PER DAY
  4. GLIPIZIDE [Concomitant]
     Dosage: 10 MG, 2 TABLETS PER DAY
  5. CPT-11 [Concomitant]

REACTIONS (4)
  - DERMATITIS ACNEIFORM [None]
  - PAIN [None]
  - RASH ERYTHEMATOUS [None]
  - URTICARIA [None]
